FAERS Safety Report 17150587 (Version 1)
Quarter: 2019Q4

REPORT INFORMATION
  Report Type: Report from Study
  Country: US (occurrence: US)
  Receive Date: 20191213
  Receipt Date: 20191213
  Transmission Date: 20200122
  Serious: Yes (Death)
  Sender: FDA-Public Use
  Company Number: US-ROCHE-2488835

PATIENT
  Age: 65 Year
  Sex: Female
  Weight: 86.45 kg

DRUGS (16)
  1. KLOR-CON [Concomitant]
     Active Substance: POTASSIUM CHLORIDE
     Dosage: TAKE 1 PACKET BY ORAL ROUTE 4 TIMES EVERY DAY DISSOLVED IN 4-6 OUNCES OF COLD WATER
     Route: 048
  2. HYDROCHLOROTHIAZIDE. [Concomitant]
     Active Substance: HYDROCHLOROTHIAZIDE
     Route: 048
  3. VENTOLIN HFA [Concomitant]
     Active Substance: ALBUTEROL SULFATE
     Dosage: INHALE 2 PUFF BY INHALATION ROUTE EVERY 4-6  HOURS AS NEEDED
     Route: 065
  4. ALBUTEROL SULFATE. [Concomitant]
     Active Substance: ALBUTEROL SULFATE
     Dosage: INHALE 1 VIAL BY INHALATION ROUTE 4 TIMES EVERY DAY
     Route: 065
  5. LOSARTAN. [Concomitant]
     Active Substance: LOSARTAN
     Route: 048
  6. ECOTRIN [Concomitant]
     Active Substance: ASPIRIN
     Route: 065
  7. FISH OIL [Concomitant]
     Active Substance: FISH OIL
     Route: 065
  8. OMEPRAZOLE. [Concomitant]
     Active Substance: OMEPRAZOLE
     Dosage: EVERY DAY BEFORE MEAL
     Route: 048
  9. ALENDRONATE [Concomitant]
     Active Substance: ALENDRONATE SODIUM
     Dosage: EVERY WEEK IN MORNING AT LEAST 30 MIN BEFORE FIRST FOOD
     Route: 048
  10. DULERA [Concomitant]
     Active Substance: FORMOTEROL FUMARATE DIHYDRATE\MOMETASONE FUROATE
     Dosage: INHALE 2 PUFF BY INHALATION ROUTE 2 TIMES A EVERY DAY IN MORNING AND EVENING
     Route: 065
  11. MONTELUKAST [Concomitant]
     Active Substance: MONTELUKAST SODIUM
     Dosage: EVERY DAY IN THE EVENING
     Route: 048
  12. PRAVASTATIN. [Concomitant]
     Active Substance: PRAVASTATIN
     Route: 048
  13. XOLAIR [Suspect]
     Active Substance: OMALIZUMAB
     Indication: ASTHMA
     Dosage: LAST XOLAIR TREATMENT WAS NOVEMBER 2018
     Route: 065
     Dates: start: 201410
  14. BENZONATATE. [Concomitant]
     Active Substance: BENZONATATE
     Route: 048
  15. AMLODIPINE [Concomitant]
     Active Substance: AMLODIPINE BESYLATE
     Route: 048
  16. CALCIUM [Concomitant]
     Active Substance: CALCIUM
     Dosage: 600
     Route: 048

REACTIONS (1)
  - Death [Fatal]

NARRATIVE: CASE EVENT DATE: 20181220
